FAERS Safety Report 18169925 (Version 2)
Quarter: 2023Q1

REPORT INFORMATION
  Report Type: Spontaneous
  Country: DE (occurrence: DE)
  Receive Date: 20200819
  Receipt Date: 20230206
  Transmission Date: 20230418
  Serious: Yes (Hospitalization)
  Sender: FDA-Public Use
  Company Number: DE-ADRED-05235-01

PATIENT
  Age: 80 Year
  Sex: Male

DRUGS (14)
  1. FEBUXOSTAT [Suspect]
     Active Substance: FEBUXOSTAT
     Indication: Product used for unknown indication
     Dosage: 80 MG, 1-0-0-0, TABLET
     Route: 048
  2. LATANOPROST [Concomitant]
     Active Substance: LATANOPROST
     Dosage: 1-0-0-0
     Route: 065
  3. BISOPROLOL [Concomitant]
     Active Substance: BISOPROLOL
     Dosage: 5 MG, 0.5-0-0.5-0, TABLET
     Route: 048
  4. EPLERENONE [Concomitant]
     Active Substance: EPLERENONE
     Dosage: 25 MG, 0-1-0-0, TABLET
     Route: 048
  5. RAMIPRIL [Concomitant]
     Active Substance: RAMIPRIL
     Dosage: 2.5 MG, 0.5-0-0-0, TABLET
     Route: 048
  6. NALOXONE HYDROCHLORIDE\TILIDINE HYDROCHLORIDE [Concomitant]
     Active Substance: NALOXONE HYDROCHLORIDE\TILIDINE HYDROCHLORIDE
     Dosage: 4|50 MG, AS NEEDED, TABLETS
     Route: 048
  7. TORSEMIDE [Concomitant]
     Active Substance: TORSEMIDE
     Dosage: 50 MG, 1-0-0-0, TABLET
     Route: 048
  8. PANTOPRAZOLE SODIUM [Concomitant]
     Active Substance: PANTOPRAZOLE SODIUM
     Dosage: 40 MG, 1-0-0-0, TABLET
     Route: 048
  9. MAGNESIUM [Concomitant]
     Active Substance: MAGNESIUM
     Dosage: 100 MG, 1-0-1-0, TABLET
     Route: 048
  10. ACLIDINIUM BROMIDE\FORMOTEROL FUMARATE [Concomitant]
     Active Substance: ACLIDINIUM BROMIDE\FORMOTEROL FUMARATE
     Dosage: 340|12 ?G, 1-0-1-0, DOSIERAEROSOL
     Route: 055
  11. AMIODARONE [Concomitant]
     Active Substance: AMIODARONE
     Dosage: 100 MG, 1-0-0-0, TABLET
     Route: 048
  12. ALBUTEROL [Concomitant]
     Active Substance: ALBUTEROL
     Dosage: 340|12 ?G, 1-0-1-0, METERED DOSE INHALER
     Route: 055
  13. DICLOFENAC [Concomitant]
     Active Substance: DICLOFENAC
     Dosage: LAST 122019
     Route: 048
  14. VALERIAN [Concomitant]
     Active Substance: VALERIAN
     Dosage: 0-0-0-2, DRAGEES
     Route: 048

REACTIONS (6)
  - Gout [Unknown]
  - Chronic obstructive pulmonary disease [Unknown]
  - Dyspnoea exertional [Unknown]
  - Cough [Unknown]
  - Dyspnoea [Unknown]
  - Weight increased [Unknown]
